FAERS Safety Report 19783121 (Version 1)
Quarter: 2021Q3

REPORT INFORMATION
  Report Type: Spontaneous
  Country: GR (occurrence: GR)
  Receive Date: 20210902
  Receipt Date: 20210902
  Transmission Date: 20211014
  Serious: Yes (Other)
  Sender: FDA-Public Use
  Company Number: GR-GILEAD-2021-0546552

PATIENT
  Age: 41 Year
  Sex: Female
  Weight: 80 kg

DRUGS (7)
  1. LORDIN [LORATADINE] [Concomitant]
     Indication: GASTROOESOPHAGEAL REFLUX PROPHYLAXIS
     Dosage: 40 MG PER DAY (MORNING)
     Route: 048
     Dates: start: 20210312
  2. DEXATON [DEXAMETHASONE SODIUM PHOSPHATE] [Concomitant]
     Indication: COVID-19
     Dosage: 6 MG ONCE PER DAY
     Route: 042
     Dates: start: 20210313
  3. INNOHEP [Concomitant]
     Active Substance: TINZAPARIN SODIUM
     Indication: PROPHYLAXIS
     Dosage: 12000 UNITS PER DAY
     Route: 058
     Dates: start: 20210313
  4. TRIATEC [LOSARTAN POTASSIUM] [Concomitant]
     Active Substance: LOSARTAN POTASSIUM
     Indication: HYPERTENSION
     Dosage: HALF (1/2) TAB OF 25 MG ONCE PER DAY
     Route: 048
     Dates: start: 20210315
  5. VEKLURY [Suspect]
     Active Substance: REMDESIVIR
     Dosage: 100 MG, QD
     Route: 042
     Dates: start: 20210314, end: 20210316
  6. VEKLURY [Suspect]
     Active Substance: REMDESIVIR
     Indication: COVID-19
     Dosage: 200 MG, ONCE
     Route: 042
     Dates: start: 20210313, end: 20210313
  7. TAVANIC [Concomitant]
     Active Substance: LEVOFLOXACIN
     Indication: RESPIRATORY TRACT INFECTION
     Dosage: 750 MG ONCE PER DAY
     Dates: start: 20210313

REACTIONS (1)
  - Sinus bradycardia [Recovering/Resolving]

NARRATIVE: CASE EVENT DATE: 20210316
